FAERS Safety Report 9652866 (Version 1)
Quarter: 2013Q4

REPORT INFORMATION
  Report Type: Spontaneous
  Country: US (occurrence: None)
  Receive Date: 20131028
  Receipt Date: 20131028
  Transmission Date: 20140711
  Serious: Yes (Disabling)
  Sender: FDA-Public Use
  Company Number: None

PATIENT
  Age: 33 Year
  Sex: Male
  Weight: 74.84 kg

DRUGS (1)
  1. AVELOX 400MG BAYER HEALTHCARE PHARMACEUTICALS [Suspect]
     Indication: ACUTE SINUSITIS
     Dosage: ONCE DAILY
     Route: 048
     Dates: start: 20131025

REACTIONS (3)
  - Musculoskeletal stiffness [None]
  - Arthralgia [None]
  - Myalgia [None]
